FAERS Safety Report 13213330 (Version 3)
Quarter: 2017Q2

REPORT INFORMATION
  Report Type: Spontaneous
  Country: US (occurrence: US)
  Receive Date: 20170210
  Receipt Date: 20170411
  Transmission Date: 20170830
  Serious: Yes (Disabling, Other)
  Sender: FDA-Public Use
  Company Number: US-REGENERON PHARMACEUTICALS, INC.-2017-11605

PATIENT

DRUGS (5)
  1. EYLEA [Suspect]
     Active Substance: AFLIBERCEPT
     Dosage: LAST DOSE, RIGHT EYE
     Route: 031
     Dates: start: 20170202, end: 20170202
  2. METFORMIN [Concomitant]
     Active Substance: METFORMIN HYDROCHLORIDE
     Indication: PRODUCT USED FOR UNKNOWN INDICATION
     Dosage: UNK
  3. EYLEA [Suspect]
     Active Substance: AFLIBERCEPT
     Indication: NEOVASCULAR AGE-RELATED MACULAR DEGENERATION
     Dosage: EVERY 4 TO 5 WEEKS, RIGHT EYE
     Route: 031
     Dates: start: 201511
  4. EYLEA [Suspect]
     Active Substance: AFLIBERCEPT
     Dosage: RIGHT EYE
     Route: 031
     Dates: start: 20161229, end: 20161229
  5. CRESTOR [Concomitant]
     Active Substance: ROSUVASTATIN CALCIUM
     Indication: PRODUCT USED FOR UNKNOWN INDICATION
     Dosage: UNK

REACTIONS (7)
  - Eye pain [Not Recovered/Not Resolved]
  - Lacrimation increased [Recovered/Resolved]
  - Photophobia [Recovered/Resolved]
  - Eye pain [Recovered/Resolved]
  - Blindness unilateral [Not Recovered/Not Resolved]
  - Eyelid disorder [Recovered/Resolved]
  - Foreign body sensation in eyes [Recovered/Resolved]

NARRATIVE: CASE EVENT DATE: 20161229
